FAERS Safety Report 4559139-2 (Version None)
Quarter: 2005Q1

REPORT INFORMATION
  Report Type: 
  Country: None (occurrence: None)
  Receive Date: 20050121
  Receipt Date: 20050121
  Transmission Date: 20050727
  Serious: Yes (Death)
  Sender: FDA-Public Use
  Company Number: None

PATIENT
  Age: 7 Decade
  Sex: Male

DRUGS (4)
  1. WARFARIN [Suspect]
  2. DIGOXIN [Suspect]
  3. PHENYTOIN [Suspect]
  4. CEPHALEXIN [Suspect]

REACTIONS (6)
  - DECREASED APPETITE [None]
  - FOOD INTERACTION [None]
  - GASTROINTESTINAL HAEMORRHAGE [None]
  - INTERNATIONAL NORMALISED RATIO INCREASED [None]
  - LOWER RESPIRATORY TRACT INFECTION [None]
  - PERICARDIAL HAEMORRHAGE [None]
